FAERS Safety Report 5039432-X (Version None)
Quarter: 2006Q2

REPORT INFORMATION
  Report Type: 
  Country: None (occurrence: None)
  Receive Date: 20060623
  Receipt Date: 20060612
  Transmission Date: 20061013
  Serious: Yes (Death, Hospitalization)
  Sender: FDA-Public Use
  Company Number: 2006075205

PATIENT
  Age: 57 Year
  Sex: Male

DRUGS (2)
  1. BEXTRA [Suspect]
     Indication: ARTHRALGIA
     Dosage: 10 MG (10 MG, 1 IN 1 D)
     Dates: start: 20020325
  2. BEXTRA [Suspect]
     Indication: TENDONITIS
     Dosage: 10 MG (10 MG, 1 IN 1 D)
     Dates: start: 20020325

REACTIONS (5)
  - CARDIOVASCULAR DISORDER [None]
  - CEREBRAL THROMBOSIS [None]
  - CEREBROVASCULAR ACCIDENT [None]
  - INJURY [None]
  - SMALL CELL LUNG CANCER STAGE UNSPECIFIED [None]
